FAERS Safety Report 12166259 (Version 5)
Quarter: 2018Q2

REPORT INFORMATION
  Report Type: Report from Study
  Country: CN (occurrence: CN)
  Receive Date: 20160309
  Receipt Date: 20180522
  Transmission Date: 20180711
  Serious: Yes (Hospitalization, Other)
  Sender: FDA-Public Use
  Company Number: PHHY2016CN029931

PATIENT
  Age: 25 Year
  Sex: Female
  Weight: 51 kg

DRUGS (140)
  1. TACROLIMUS. [Suspect]
     Active Substance: TACROLIMUS
     Indication: RENAL TRANSPLANT
     Dosage: 5 MG, QD
     Route: 065
     Dates: start: 20151205, end: 20151213
  2. SODIUM CHLORIDE COMPOUND INJECTION [Concomitant]
     Dosage: 50 ML, UNK
     Route: 042
     Dates: start: 20151204, end: 20151204
  3. SODIUM CHLORIDE COMPOUND INJECTION [Concomitant]
     Dosage: 500 ML, SOS
     Dates: start: 20160120, end: 20160120
  4. ALBUMIN [Concomitant]
     Active Substance: ALBUMIN HUMAN
     Indication: SUPPLEMENTATION THERAPY
     Dosage: 20 G, SOS
     Route: 042
     Dates: start: 20151204, end: 20151204
  5. ALBUMIN [Concomitant]
     Active Substance: ALBUMIN HUMAN
     Dosage: 10 G, QD
     Route: 042
     Dates: start: 20151204, end: 20151206
  6. BISOPROLOL FUMARATE. [Concomitant]
     Active Substance: BISOPROLOL FUMARATE
     Indication: HYPERTENSION
     Dosage: 5 MG, QD
     Route: 048
     Dates: start: 20151210, end: 20151210
  7. BACTERIAL LYSATES [Concomitant]
     Dosage: 7 MG, QD
     Route: 065
     Dates: start: 20151224, end: 20151224
  8. CRAVIT [Concomitant]
     Active Substance: LEVOFLOXACIN
     Indication: INFECTION PROPHYLAXIS
     Dosage: 100 ML, SOS
     Route: 042
     Dates: start: 20151204, end: 20151204
  9. ALOSTIN//ALPROSTADIL [Concomitant]
     Dosage: 10 OT, QD
     Route: 042
     Dates: start: 20160115, end: 20160121
  10. PANTOPRAZOLE [Concomitant]
     Active Substance: PANTOPRAZOLE
     Indication: GASTROOESOPHAGEAL REFLUX PROPHYLAXIS
     Dosage: 40 MG, SOS
     Route: 042
     Dates: start: 20151204, end: 20151204
  11. CEFOPERAZONE SODIUM W/SULBACTAM SODIUM [Concomitant]
     Indication: INFECTION PROPHYLAXIS
     Dosage: 1500 MG, BID
     Route: 042
     Dates: start: 20151217, end: 20151221
  12. SMECTA [Concomitant]
     Active Substance: MONTMORILLONITE
     Dosage: 3 G, SOS
     Route: 048
     Dates: start: 20160110, end: 20160110
  13. VASOREL [Concomitant]
     Active Substance: TRIMETAZIDINE DIHYDROCHLORIDE
     Indication: PROPHYLAXIS
     Dosage: 20 MG, TID
     Route: 048
     Dates: start: 20151206, end: 20151223
  14. VANCOMYCIN HYDROCHLORIDE. [Concomitant]
     Active Substance: VANCOMYCIN HYDROCHLORIDE
     Indication: INFECTION PROPHYLAXIS
     Dosage: 500 MG, BID
     Route: 042
     Dates: start: 20151222, end: 20151222
  15. VANCOMYCIN HYDROCHLORIDE. [Concomitant]
     Active Substance: VANCOMYCIN HYDROCHLORIDE
     Indication: INFLAMMATION
     Dosage: 500 MG, SOS
     Route: 042
     Dates: start: 20151222, end: 20151222
  16. CETIRIZINE HYDROCHLORIDE. [Concomitant]
     Active Substance: CETIRIZINE HYDROCHLORIDE
     Dosage: 10 MG, SOS
     Route: 048
     Dates: start: 20151225, end: 20151225
  17. DOPAMINE HYCROCHLORIDE [Concomitant]
     Active Substance: DOPAMINE HYDROCHLORIDE
     Indication: POOR PERIPHERAL CIRCULATION
     Dosage: 10 MG, SOS
     Route: 042
     Dates: start: 20151221, end: 20151221
  18. DOPAMINE HYCROCHLORIDE [Concomitant]
     Active Substance: DOPAMINE HYDROCHLORIDE
     Dosage: 10 MG, SOS
     Route: 042
     Dates: start: 20151222, end: 20151222
  19. POLYENE PHOSPHATIDYLCHOLINE [Concomitant]
     Active Substance: PHOSPHOLIPID
     Dosage: 456 MG, TID
     Route: 048
     Dates: start: 20151224, end: 20151228
  20. COENZYME [Concomitant]
     Active Substance: UBIDECARENONE
     Dosage: 2 DF,  SOS
     Route: 042
     Dates: start: 20151204, end: 20151205
  21. MUCOSOLVAN [Concomitant]
     Active Substance: AMBROXOL HYDROCHLORIDE
     Indication: PRODUCTIVE COUGH
     Dosage: 15 MG, TID
     Route: 055
     Dates: start: 20151204, end: 20151223
  22. FUROSEMID ^DAK^ [Concomitant]
     Indication: POLYURIA
     Dosage: 40 MG, SOS
     Route: 042
     Dates: start: 20151202, end: 20151202
  23. MUCOSOLVAN [Concomitant]
     Active Substance: AMBROXOL HYDROCHLORIDE
     Dosage: 30 MG, SOS
     Route: 042
     Dates: start: 20151223, end: 20151223
  24. MUCOSOLVAN [Concomitant]
     Active Substance: AMBROXOL HYDROCHLORIDE
     Dosage: 30 MG, SOS
     Route: 042
     Dates: start: 20151224, end: 20151224
  25. METHYLPREDNISOLONE. [Suspect]
     Active Substance: METHYLPREDNISOLONE
     Indication: RENAL TRANSPLANT
     Dosage: 500 MG, QD
     Route: 065
     Dates: start: 20151203, end: 20151203
  26. METHYLPREDNISOLONE. [Suspect]
     Active Substance: METHYLPREDNISOLONE
     Dosage: 40 MG,SOS
     Route: 065
     Dates: start: 20151218, end: 20151218
  27. TACROLIMUS. [Suspect]
     Active Substance: TACROLIMUS
     Dosage: 4.5 MG, QD
     Route: 065
     Dates: start: 20151213, end: 20151217
  28. SODIUM CHLORIDE COMPOUND INJECTION [Concomitant]
     Dosage: 100 ML, QD
     Route: 042
     Dates: start: 20151204, end: 20151206
  29. MOXIFLOXACIN//MOXIFLOXACIN HYDROCHLORIDE [Concomitant]
     Dosage: 400 MG, SOS
     Route: 042
     Dates: start: 20151213, end: 20151213
  30. GLUTATHIONE [Concomitant]
     Active Substance: GLUTATHIONE
     Dosage: 900 MG, SOS
     Route: 042
     Dates: start: 20151204, end: 20151217
  31. ADALAT [Concomitant]
     Active Substance: NIFEDIPINE
     Indication: HYPERTENSION
     Dosage: 30 MG, SOS
     Route: 048
     Dates: start: 20151206, end: 20151206
  32. BISOPROLOL FUMARATE. [Concomitant]
     Active Substance: BISOPROLOL FUMARATE
     Dosage: 5 MG, QD
     Route: 065
     Dates: start: 20160101
  33. BACTERIAL LYSATES [Concomitant]
     Indication: INFECTION PROPHYLAXIS
     Dosage: 7 MG, QD
     Route: 048
     Dates: start: 20151213, end: 20151215
  34. CRAVIT [Concomitant]
     Active Substance: LEVOFLOXACIN
     Indication: INFLAMMATION
     Dosage: 100 ML, SOS
     Route: 042
     Dates: start: 20151203, end: 20151203
  35. CRAVIT [Concomitant]
     Active Substance: LEVOFLOXACIN
     Dosage: 100 ML, QD
     Route: 042
     Dates: start: 20151204, end: 20151208
  36. CRAVIT [Concomitant]
     Active Substance: LEVOFLOXACIN
     Dosage: 100 ML, QD
     Route: 042
     Dates: start: 20151214, end: 20151217
  37. LIVARACINE [Concomitant]
     Dosage: 2500 IU,SOS
     Route: 061
     Dates: start: 20151219, end: 20151219
  38. LIVARACINE [Concomitant]
     Dosage: 2500 IU, SOS
     Route: 042
     Dates: start: 20151225, end: 20151225
  39. ALBUMIN HUMAN [Concomitant]
     Active Substance: ALBUMIN HUMAN
     Indication: SUPPLEMENTATION THERAPY
     Dosage: 10 G, SOS
     Route: 042
     Dates: start: 20151203, end: 20151203
  40. DICLOFENAC SODIUM W/LIDOCAINE HYDROCHLORIDE [Concomitant]
     Indication: SEIZURE
     Dosage: 1 AMPULE,SOS
     Route: 042
     Dates: start: 20151204, end: 20151204
  41. CEPHAZOLINE SODIUM [Concomitant]
     Active Substance: CEFAZOLIN SODIUM
     Indication: SKIN TEST
     Dosage: 500 MG, SOS
     Route: 023
     Dates: start: 20151204, end: 20151204
  42. PHOSPHOCREATINE SODIUM [Concomitant]
     Active Substance: PHOSPHOCREATINE SODIUM
     Dosage: 1 G, SOS
     Route: 042
     Dates: start: 20151204, end: 20151218
  43. VANCOMYCIN HYDROCHLORIDE. [Concomitant]
     Active Substance: VANCOMYCIN HYDROCHLORIDE
     Dosage: 500 MG, SOS
     Route: 042
     Dates: start: 20151223, end: 20151223
  44. CETIRIZINE HYDROCHLORIDE. [Concomitant]
     Active Substance: CETIRIZINE HYDROCHLORIDE
     Dosage: 10 MG, SOS
     Route: 048
     Dates: start: 20151218, end: 20151218
  45. CEFOTIAM [Concomitant]
     Active Substance: CEFOTIAM
     Indication: INFECTION PROPHYLAXIS
     Dosage: 1000 MG, SOS
     Route: 042
     Dates: start: 20151204, end: 20151210
  46. LEVOCARNITINE. [Concomitant]
     Active Substance: LEVOCARNITINE
     Indication: PROPHYLAXIS
     Dosage: 2 VIALS, SOS
     Route: 042
     Dates: start: 20151204, end: 20151204
  47. MEPREDNISONE [Concomitant]
     Active Substance: MEPREDNISONE
     Indication: PROPHYLAXIS AGAINST TRANSPLANT REJECTION
     Dosage: 15 MG, QD
     Route: 065
     Dates: start: 20160108, end: 20160214
  48. MYFORTIC [Suspect]
     Active Substance: MYCOPHENOLATE SODIUM
     Dosage: 1080 MG, QD
     Route: 065
     Dates: start: 20151206, end: 20151207
  49. MYFORTIC [Suspect]
     Active Substance: MYCOPHENOLATE SODIUM
     Dosage: 720 MG, QD
     Route: 065
     Dates: start: 20151222, end: 20160107
  50. PREDNISONE. [Suspect]
     Active Substance: PREDNISONE
     Indication: RENAL TRANSPLANT
     Dosage: 20 MG, QD
     Route: 065
     Dates: start: 20151206, end: 20151219
  51. TACROLIMUS. [Suspect]
     Active Substance: TACROLIMUS
     Dosage: 3 MG, QD
     Route: 065
     Dates: start: 20151225, end: 20160112
  52. FK 506 [Concomitant]
     Active Substance: TACROLIMUS
     Dosage: 2.5 MG, UNK
     Route: 065
  53. GLUTATHIONE [Concomitant]
     Active Substance: GLUTATHIONE
     Indication: PROPHYLAXIS
     Dosage: 900 MG, QD
     Route: 042
     Dates: start: 20151204, end: 20151204
  54. ADALAT [Concomitant]
     Active Substance: NIFEDIPINE
     Dosage: 30 MG, SOS
     Route: 048
     Dates: start: 20151208, end: 20151208
  55. HEPARIN SODIUM. [Concomitant]
     Active Substance: HEPARIN SODIUM
     Dosage: 6250 IU, SOS
     Route: 042
     Dates: start: 20151213, end: 20151213
  56. DILTIAZEM HYDROCHLORIDE. [Concomitant]
     Active Substance: DILTIAZEM HYDROCHLORIDE
     Indication: POOR PERIPHERAL CIRCULATION
     Dosage: 30 MG, SOS
     Route: 048
     Dates: start: 20151206, end: 20151206
  57. PHOSPHOCREATINE SODIUM [Concomitant]
     Active Substance: PHOSPHOCREATINE SODIUM
     Indication: PROPHYLAXIS
     Dosage: 1 G, SOS
     Route: 042
     Dates: start: 20151204, end: 20151204
  58. VANCOMYCIN HYDROCHLORIDE. [Concomitant]
     Active Substance: VANCOMYCIN HYDROCHLORIDE
     Dosage: 500 MG, SOS
     Route: 042
     Dates: start: 20151224, end: 20151230
  59. CETIRIZINE HYDROCHLORIDE. [Concomitant]
     Active Substance: CETIRIZINE HYDROCHLORIDE
     Indication: ALLERGY PROPHYLAXIS
     Dosage: 10 MG, SOS
     Route: 048
     Dates: start: 20151211, end: 20151211
  60. DOPAMINE HYCROCHLORIDE [Concomitant]
     Active Substance: DOPAMINE HYDROCHLORIDE
     Dosage: 10 MG, SOS
     Route: 048
     Dates: start: 20160101, end: 20160108
  61. POLYENE PHOSPHATIDYLCHOLINE [Concomitant]
     Active Substance: PHOSPHOLIPID
     Indication: PROPHYLAXIS
     Dosage: 456 MG, TID
     Route: 048
     Dates: start: 20151217, end: 20151223
  62. POLYENE PHOSPHATIDYLCHOLINE [Concomitant]
     Active Substance: PHOSPHOLIPID
     Dosage: 226 MG, TID
     Route: 048
     Dates: start: 20160101
  63. FUROSEMID ^DAK^ [Concomitant]
     Dosage: 120 MG, SOS
     Route: 042
     Dates: start: 20151204, end: 20151204
  64. FUROSEMID ^DAK^ [Concomitant]
     Dosage: 40 MG, QD
     Route: 042
     Dates: start: 20151222, end: 20151223
  65. METHYLPREDNISOLONE. [Suspect]
     Active Substance: METHYLPREDNISOLONE
     Indication: ALLERGY PROPHYLAXIS
     Dosage: 420 MG, QD
     Route: 065
     Dates: start: 20151204, end: 20151205
  66. SODIUM CHLORIDE COMPOUND INJECTION [Concomitant]
     Indication: INFUSION
     Dosage: 1000 ML, QD
     Route: 042
     Dates: start: 20151204, end: 20151204
  67. SODIUM CHLORIDE COMPOUND INJECTION [Concomitant]
     Dosage: 100 ML, SOS
     Route: 042
     Dates: start: 20151218, end: 20151218
  68. BISOPROLOL FUMARATE. [Concomitant]
     Active Substance: BISOPROLOL FUMARATE
     Dosage: 5 MG, QD
     Route: 048
     Dates: start: 20151210, end: 20151223
  69. BISOPROLOL FUMARATE. [Concomitant]
     Active Substance: BISOPROLOL FUMARATE
     Dosage: 5 MG, QD
     Route: 048
     Dates: start: 20151223
  70. ALOSTIN//ALPROSTADIL [Concomitant]
     Indication: POOR PERIPHERAL CIRCULATION
     Dosage: 10 OT, QD
     Route: 042
     Dates: start: 20151204, end: 20151204
  71. MEROPENEM. [Concomitant]
     Active Substance: MEROPENEM
     Indication: INFECTION PROPHYLAXIS
     Dosage: 500 MG, TID
     Route: 042
     Dates: start: 20151221, end: 20151222
  72. PANTOPRAZOLE [Concomitant]
     Active Substance: PANTOPRAZOLE
     Dosage: 40 MG, BID
     Route: 042
     Dates: start: 20151204, end: 20151220
  73. DESLANOSIDE [Concomitant]
     Active Substance: DESLANOSIDE
     Indication: CARDIAC FAILURE
     Dosage: 200 MG, SOS
     Route: 042
     Dates: start: 20151205, end: 20151205
  74. SMECTA [Concomitant]
     Active Substance: MONTMORILLONITE
     Dosage: 6 G, SOS
     Route: 048
     Dates: start: 20151229, end: 20151229
  75. ALLERZIN//PROMETHAZINE HYDROCHLORIDE [Concomitant]
     Dosage: 25 MG, SOS
     Route: 030
     Dates: start: 20151218, end: 20151218
  76. FUROSEMID ^DAK^ [Concomitant]
     Dosage: 40 MG, SOS
     Route: 042
     Dates: start: 20151219, end: 20151219
  77. MEPREDNISONE [Concomitant]
     Active Substance: MEPREDNISONE
     Dosage: 8 MG, UNK
     Route: 065
     Dates: start: 20160215
  78. MYFORTIC [Suspect]
     Active Substance: MYCOPHENOLATE SODIUM
     Dosage: 1440 MG, QD
     Route: 065
     Dates: start: 20151205, end: 20151205
  79. MYFORTIC [Suspect]
     Active Substance: MYCOPHENOLATE SODIUM
     Dosage: 720 MG, QD
     Route: 065
     Dates: start: 20151208, end: 20151209
  80. BASILIXIMAB [Suspect]
     Active Substance: BASILIXIMAB
     Dosage: 20 MG, QD
     Route: 065
     Dates: start: 20151207, end: 20151207
  81. METHYLPREDNISOLONE. [Suspect]
     Active Substance: METHYLPREDNISOLONE
     Dosage: 40 MG,SOS
     Route: 065
     Dates: start: 20151211, end: 20151211
  82. SODIUM CHLORIDE COMPOUND INJECTION [Concomitant]
     Dosage: 100 ML, SOS
     Route: 042
     Dates: start: 20151211, end: 20151211
  83. MOXIFLOXACIN//MOXIFLOXACIN HYDROCHLORIDE [Concomitant]
     Indication: INFECTION PROPHYLAXIS
     Dosage: 400 MG, SOS
     Route: 042
     Dates: start: 20151212, end: 20151212
  84. LIQUORICE [Concomitant]
     Active Substance: LICORICE
     Dosage: 10 ML, TID
     Route: 048
     Dates: start: 20151219
  85. ALOSTIN//ALPROSTADIL [Concomitant]
     Dosage: 10 OT, QD
     Route: 042
     Dates: start: 20151204, end: 20151223
  86. SMECTA [Concomitant]
     Active Substance: MONTMORILLONITE
     Dosage: 6 G, SOS
     Route: 048
     Dates: start: 20151207, end: 20151207
  87. DOPAMINE HYCROCHLORIDE [Concomitant]
     Active Substance: DOPAMINE HYDROCHLORIDE
     Dosage: 10 MG, QD
     Route: 042
     Dates: start: 20151222, end: 20151223
  88. MUCOSOLVAN [Concomitant]
     Active Substance: AMBROXOL HYDROCHLORIDE
     Dosage: 30 MG, BID
     Route: 042
     Dates: start: 20151224, end: 20151230
  89. FUROSEMID ^DAK^ [Concomitant]
     Dosage: 40 MG, SOS
     Route: 042
     Dates: start: 20151205, end: 20151205
  90. FUROSEMID ^DAK^ [Concomitant]
     Dosage: 40 MG, SOS
     Route: 042
     Dates: start: 20151221, end: 20151221
  91. FUROSEMID ^DAK^ [Concomitant]
     Dosage: 40 MG, SOS
     Route: 042
     Dates: start: 20151222, end: 20151222
  92. MUCOSOLVAN [Concomitant]
     Active Substance: AMBROXOL HYDROCHLORIDE
     Indication: PRODUCTIVE COUGH
     Dosage: 30 MG, TID
     Route: 042
     Dates: start: 20151208, end: 20151223
  93. MYFORTIC [Suspect]
     Active Substance: MYCOPHENOLATE SODIUM
     Dosage: 720 MG, QD
     Route: 065
     Dates: start: 20151210, end: 20151217
  94. BASILIXIMAB [Suspect]
     Active Substance: BASILIXIMAB
     Indication: RENAL TRANSPLANT
     Dosage: 20 MG, QD
     Route: 065
     Dates: start: 20151203, end: 20151203
  95. METHYLPREDNISOLONE. [Suspect]
     Active Substance: METHYLPREDNISOLONE
     Dosage: 360 MG, QD
     Route: 065
     Dates: start: 20151206, end: 20151206
  96. PREDNISONE. [Suspect]
     Active Substance: PREDNISONE
     Dosage: 20 MG, UNK
     Route: 065
     Dates: start: 20151220
  97. TACROLIMUS. [Suspect]
     Active Substance: TACROLIMUS
     Dosage: 3.5 MG, QD
     Route: 065
     Dates: start: 20151213, end: 20151217
  98. TACROLIMUS. [Suspect]
     Active Substance: TACROLIMUS
     Dosage: 3.5 MG, QD
     Route: 065
     Dates: start: 20151216, end: 20151224
  99. TACROLIMUS. [Suspect]
     Active Substance: TACROLIMUS
     Dosage: 3 MG, QD
     Route: 065
     Dates: start: 20160118
  100. SODIUM CHLORIDE COMPOUND INJECTION [Concomitant]
     Dosage: 100 ML, SOS
     Route: 042
     Dates: start: 20151207, end: 20151207
  101. ADALAT [Concomitant]
     Active Substance: NIFEDIPINE
     Dosage: 30 MG, SOS
     Route: 048
     Dates: start: 20151207, end: 20151207
  102. LIQUORICE [Concomitant]
     Active Substance: LICORICE
     Indication: COUGH
     Dosage: 10 ML, TID
     Route: 048
     Dates: start: 20151212, end: 20151218
  103. CRAVIT [Concomitant]
     Active Substance: LEVOFLOXACIN
     Dosage: 100 ML, SOS
     Route: 042
     Dates: start: 20151220, end: 20151220
  104. LIVARACINE [Concomitant]
     Indication: ANTICOAGULANT THERAPY
     Dosage: 2500 IU,SOS
     Route: 061
     Dates: start: 20151218, end: 20151218
  105. MEROPENEM. [Concomitant]
     Active Substance: MEROPENEM
     Indication: INFLAMMATION
     Dosage: 500 MG, SOS
     Route: 042
     Dates: start: 20151221, end: 20151221
  106. PANTOPRAZOLE [Concomitant]
     Active Substance: PANTOPRAZOLE
     Dosage: 40 MG, QD
     Route: 042
     Dates: start: 20151220, end: 20151223
  107. DICLOFENAC SODIUM W/LIDOCAINE HYDROCHLORIDE [Concomitant]
     Indication: ANALGESIC THERAPY
  108. SMECTA [Concomitant]
     Active Substance: MONTMORILLONITE
     Indication: DIARRHOEA
     Dosage: 6 G, SOS
     Route: 048
     Dates: start: 20151206, end: 20151206
  109. SMECTA [Concomitant]
     Active Substance: MONTMORILLONITE
     Dosage: 3000 MG, TID
     Route: 048
     Dates: start: 20160110, end: 20160110
  110. ALLERZIN//PROMETHAZINE HYDROCHLORIDE [Concomitant]
     Indication: ALLERGY PROPHYLAXIS
     Dosage: 25 MG, SOS
     Route: 030
     Dates: start: 20151211, end: 20151211
  111. RECOMBINANT HUMAN ERYTHROPOIETIN [Concomitant]
     Active Substance: ERYTHROPOIETIN
     Indication: RED BLOOD CELL COUNT DECREASED
     Dosage: 1000 IU, SOS
     Route: 061
     Dates: start: 20151207, end: 20151207
  112. RECOMBINANT HUMAN ERYTHROPOIETIN [Concomitant]
     Active Substance: ERYTHROPOIETIN
     Dosage: 1000 IU, SOS
     Route: 061
     Dates: start: 20151211, end: 20151211
  113. RECOMBINANT HUMAN ERYTHROPOIETIN [Concomitant]
     Active Substance: ERYTHROPOIETIN
     Dosage: 1000 IU, SOS
     Route: 061
     Dates: start: 20151218, end: 20151218
  114. MYFORTIC [Suspect]
     Active Substance: MYCOPHENOLATE SODIUM
     Indication: RENAL TRANSPLANT
     Dosage: 720 MG, QD
     Route: 065
     Dates: start: 20151203, end: 20151203
  115. MYFORTIC [Suspect]
     Active Substance: MYCOPHENOLATE SODIUM
     Dosage: 540 MG, QD
     Route: 065
     Dates: start: 20160101
  116. TACROLIMUS. [Suspect]
     Active Substance: TACROLIMUS
     Dosage: 20 MG, QD
     Route: 065
     Dates: start: 20151207, end: 20151207
  117. TACROLIMUS. [Suspect]
     Active Substance: TACROLIMUS
     Dosage: 3 MG, QD
     Route: 065
     Dates: start: 20160111, end: 20160112
  118. FK 506 [Concomitant]
     Active Substance: TACROLIMUS
     Indication: PROPHYLAXIS AGAINST TRANSPLANT REJECTION
     Dosage: 3 MG, QD
     Route: 065
     Dates: start: 20160118, end: 20160214
  119. ADALAT [Concomitant]
     Active Substance: NIFEDIPINE
     Dosage: 30 MG, SOS
     Route: 048
     Dates: start: 20151209, end: 20151209
  120. ADALAT [Concomitant]
     Active Substance: NIFEDIPINE
     Dosage: 30 MG, QD
     Route: 048
     Dates: start: 20151209, end: 20151211
  121. HEPARIN SODIUM. [Concomitant]
     Active Substance: HEPARIN SODIUM
     Indication: PRODUCT USED FOR UNKNOWN INDICATION
     Dosage: 6250 IU, QD
     Route: 042
     Dates: start: 20151204, end: 20151217
  122. ALOSTIN//ALPROSTADIL [Concomitant]
     Dosage: 10 OT, QD
     Route: 042
     Dates: start: 20151224, end: 20151230
  123. DILTIAZEM HYDROCHLORIDE. [Concomitant]
     Active Substance: DILTIAZEM HYDROCHLORIDE
     Dosage: 30 MG, BID
     Route: 048
     Dates: start: 20151206, end: 20151209
  124. DOPAMINE HYCROCHLORIDE [Concomitant]
     Active Substance: DOPAMINE HYDROCHLORIDE
     Dosage: 10 MG, SOS
     Route: 048
     Dates: start: 20151228, end: 20151228
  125. ALLERZIN//PROMETHAZINE HYDROCHLORIDE [Concomitant]
     Dosage: 25 MG, SOS
     Route: 030
     Dates: start: 20151220, end: 20151225
  126. POLYENE PHOSPHATIDYLCHOLINE [Concomitant]
     Active Substance: PHOSPHOLIPID
     Dosage: 228 MG, TID
     Route: 048
     Dates: start: 20151228, end: 20151230
  127. COENZYME [Concomitant]
     Active Substance: UBIDECARENONE
     Indication: SUPPLEMENTATION THERAPY
     Dosage: 2 DF, QD
     Route: 042
     Dates: start: 20151204, end: 20151204
  128. MUCOSOLVAN [Concomitant]
     Active Substance: AMBROXOL HYDROCHLORIDE
     Dosage: 15 MG, TID
     Route: 055
     Dates: start: 20151224, end: 20151230
  129. FUROSEMID ^DAK^ [Concomitant]
     Dosage: 40 MG, SOS
     Route: 042
     Dates: start: 20151204, end: 20151204
  130. MYFORTIC [Suspect]
     Active Substance: MYCOPHENOLATE SODIUM
     Dosage: 540 MG, QD
     Route: 065
     Dates: start: 20151218, end: 20151221
  131. MOXIFLOXACIN//MOXIFLOXACIN HYDROCHLORIDE [Concomitant]
     Indication: INFLAMMATION
     Dosage: 400 MG, QD
     Route: 042
     Dates: start: 20151210, end: 20151214
  132. PHENOBARB//PHENOBARBITAL SODIUM [Concomitant]
     Indication: ANAESTHETIC PREMEDICATION
     Dosage: 100 MG, SOS
     Route: 030
     Dates: start: 20151203, end: 20151203
  133. BACTERIAL LYSATES [Concomitant]
     Dosage: 7 MG, QD
     Route: 048
     Dates: start: 20151213, end: 20151223
  134. SCOPOLAMINE HYDROBROMIDE. [Concomitant]
     Active Substance: SCOPOLAMINE HYDROBROMIDE
     Indication: GASTROOESOPHAGEAL REFLUX PROPHYLAXIS
     Dosage: 300 MG, SOS
     Route: 030
     Dates: start: 20151230, end: 20151230
  135. CEFOPERAZONE SODIUM W/SULBACTAM SODIUM [Concomitant]
     Indication: INFLAMMATION
     Dosage: 1500 MG, BID
     Route: 042
     Dates: start: 20151210, end: 20151216
  136. RECOMBINANT HUMAN ERYTHROPOIETIN [Concomitant]
     Active Substance: ERYTHROPOIETIN
     Dosage: 1000 IU, SOS
     Route: 061
     Dates: start: 20151216, end: 20151216
  137. CEFOTIAM [Concomitant]
     Active Substance: CEFOTIAM
     Indication: INFLAMMATION
     Dosage: 1000 MG, BID
     Route: 042
     Dates: start: 20151204, end: 20151204
  138. MUCOSOLVAN [Concomitant]
     Active Substance: AMBROXOL HYDROCHLORIDE
     Dosage: 15 MG, SOS
     Route: 055
     Dates: start: 20151204, end: 20151223
  139. MUCOSOLVAN [Concomitant]
     Active Substance: AMBROXOL HYDROCHLORIDE
     Dosage: 15 MG, SOS
     Route: 055
     Dates: start: 20151224, end: 20151224
  140. LEVOCARNITINE. [Concomitant]
     Active Substance: LEVOCARNITINE
     Dosage: 2 VIALS, QD
     Route: 042
     Dates: start: 20151204, end: 20151218

REACTIONS (13)
  - Cough [Recovered/Resolved]
  - Productive cough [Recovered/Resolved]
  - Blood creatinine increased [Not Recovered/Not Resolved]
  - Diarrhoea [Recovering/Resolving]
  - Body temperature increased [Recovered/Resolved]
  - Throat irritation [Not Recovered/Not Resolved]
  - Nasopharyngitis [Not Recovered/Not Resolved]
  - Nephrogenic anaemia [Not Recovered/Not Resolved]
  - Pneumonia [Recovered/Resolved]
  - Upper respiratory tract infection [Recovering/Resolving]
  - Incision site pain [Recovering/Resolving]
  - Renal hypertension [Not Recovered/Not Resolved]
  - Delayed graft function [Recovered/Resolved]

NARRATIVE: CASE EVENT DATE: 20151205
